FAERS Safety Report 9689271 (Version 1)
Quarter: 2013Q4

REPORT INFORMATION
  Report Type: Spontaneous
  Country: IT (occurrence: IT)
  Receive Date: 20131114
  Receipt Date: 20131114
  Transmission Date: 20140711
  Serious: Yes (Hospitalization)
  Sender: FDA-Public Use
  Company Number: IT-TEVA-443854ISR

PATIENT
  Age: 40 Year
  Sex: Female

DRUGS (5)
  1. CARBOLITHIUM 150 MG [Suspect]
     Dates: start: 20130917, end: 20130917
  2. VENLAFAXINA CLORIDRATO [Suspect]
     Dates: start: 20130917, end: 20130917
  3. BUPROPIONE CLORIDRATO [Suspect]
     Dates: start: 20130917, end: 20130917
  4. SODIO VALPROATO [Suspect]
     Dates: start: 20130917, end: 20130917
  5. ALPRAZOLAM [Suspect]
     Dates: start: 20130917, end: 20130917

REACTIONS (4)
  - Drug abuse [Recovering/Resolving]
  - Psychomotor hyperactivity [Recovering/Resolving]
  - Confusional state [Recovering/Resolving]
  - Sopor [Recovering/Resolving]
